FAERS Safety Report 9993001 (Version 1)
Quarter: 2014Q1

REPORT INFORMATION
  Report Type: Spontaneous
  Country: US (occurrence: US)
  Receive Date: 20140310
  Receipt Date: 20140310
  Transmission Date: 20141002
  Serious: No
  Sender: FDA-Public Use
  Company Number: US-ABBVIE-13P-163-1074009-00

PATIENT
  Age: 29 Year
  Sex: Female
  Weight: 63.11 kg

DRUGS (4)
  1. LUPRON DEPOT [Suspect]
     Indication: ENDOMETRIOSIS
     Dosage: TWO INJECTIONS RECEIVED TOTAL
     Route: 030
     Dates: start: 20120524, end: 20120823
  2. LUPRON DEPOT [Suspect]
     Indication: ENDOMETRIOSIS
     Dosage: 1 INJECTION RECEIVED
     Route: 030
     Dates: start: 20120426, end: 20120426
  3. AGYESTIN [Concomitant]
     Indication: PRODUCT USED FOR UNKNOWN INDICATION
  4. AMITRIPTYLINE [Concomitant]
     Indication: PRODUCT USED FOR UNKNOWN INDICATION

REACTIONS (1)
  - Depression [Recovering/Resolving]
